FAERS Safety Report 8276173-X (Version None)
Quarter: 2012Q2

REPORT INFORMATION
  Report Type: 
  Country: None (occurrence: None)
  Receive Date: 20120409
  Receipt Date: 20120329
  Transmission Date: 20120825
  Serious: Yes (Disabling, Other)
  Sender: FDA-Public Use
  Company Number: ACO_29883_2012

PATIENT
  Age: 54 Year
  Sex: Male
  Weight: 131.5 kg

DRUGS (7)
  1. PERCOCET [Concomitant]
  2. AMPYRA [Suspect]
     Indication: GAIT DISTURBANCE
     Dosage: 20 MG/DAY, ORAL
     Route: 048
     Dates: start: 20120319, end: 20120325
  3. TRAMADOL HCL [Concomitant]
  4. CYMBALTA [Concomitant]
  5. AVODART [Concomitant]
  6. SIMVASTATIN [Concomitant]
  7. LISINOPRIL AND HYDROCHLOROTHIAZIDE [Concomitant]

REACTIONS (8)
  - BACK PAIN [None]
  - ASTHENIA [None]
  - HYPOAESTHESIA [None]
  - PAIN IN EXTREMITY [None]
  - PARAESTHESIA [None]
  - ABDOMINAL DISCOMFORT [None]
  - DIARRHOEA [None]
  - ABASIA [None]
